FAERS Safety Report 7138453-0 (Version None)
Quarter: 2010Q4

REPORT INFORMATION
  Report Type: 
  Country: None (occurrence: None)
  Receive Date: 20101206
  Receipt Date: 20101130
  Transmission Date: 20110411
  Serious: Yes (Death)
  Sender: FDA-Public Use
  Company Number: PHHY2010RU81157

PATIENT
  Age: 55 Year
  Sex: Male

DRUGS (2)
  1. GLIVEC [Suspect]
     Indication: CHRONIC MYELOID LEUKAEMIA
     Dosage: 400 MG DIALY
     Dates: start: 20100901
  2. ASPIRIN [Concomitant]

REACTIONS (4)
  - GASTROINTESTINAL NECROSIS [None]
  - INTESTINAL ISCHAEMIA [None]
  - PERITONITIS [None]
  - TREATMENT NONCOMPLIANCE [None]
